FAERS Safety Report 24257658 (Version 5)
Quarter: 2024Q4

REPORT INFORMATION
  Report Type: Spontaneous
  Country: PT (occurrence: PT)
  Receive Date: 20240828
  Receipt Date: 20241227
  Transmission Date: 20250115
  Serious: Yes (Other)
  Sender: AUROBINDO
  Company Number: PT-JNJFOC-20240813039

PATIENT
  Age: 59 Year
  Sex: Female

DRUGS (18)
  1. AMISULPRIDE [Suspect]
     Active Substance: AMISULPRIDE
     Indication: Alcoholism
     Dosage: UNK
     Route: 065
     Dates: start: 202110
  2. AMISULPRIDE [Suspect]
     Active Substance: AMISULPRIDE
     Indication: Alcohol withdrawal syndrome
  3. AMISULPRIDE [Suspect]
     Active Substance: AMISULPRIDE
     Indication: Alcohol detoxification
  4. DIAZEPAM [Suspect]
     Active Substance: DIAZEPAM
     Indication: Alcoholism
     Dosage: UNK
     Route: 065
     Dates: start: 202110
  5. DIAZEPAM [Suspect]
     Active Substance: DIAZEPAM
     Indication: Alcohol withdrawal syndrome
  6. DIAZEPAM [Suspect]
     Active Substance: DIAZEPAM
     Indication: Alcohol detoxification
  7. DULOXETINE [Suspect]
     Active Substance: DULOXETINE
     Indication: Torticollis
     Dosage: UNK
     Route: 065
     Dates: start: 202206
  8. ESCITALOPRAM [Suspect]
     Active Substance: ESCITALOPRAM OXALATE
     Indication: Alcoholism
     Dosage: UNK
     Route: 065
     Dates: start: 202110
  9. ESCITALOPRAM [Suspect]
     Active Substance: ESCITALOPRAM OXALATE
     Indication: Alcohol withdrawal syndrome
  10. LORAZEPAM [Suspect]
     Active Substance: LORAZEPAM
     Indication: Alcoholism
     Dosage: UNK
     Route: 065
     Dates: start: 202110
  11. LORAZEPAM [Suspect]
     Active Substance: LORAZEPAM
     Indication: Alcohol withdrawal syndrome
  12. LORAZEPAM [Suspect]
     Active Substance: LORAZEPAM
     Indication: Alcohol detoxification
  13. TIAPRIDE [Suspect]
     Active Substance: TIAPRIDE
     Indication: Alcoholism
     Dosage: UNK
     Route: 065
     Dates: start: 202110, end: 202202
  14. TIAPRIDE [Suspect]
     Active Substance: TIAPRIDE
     Indication: Alcohol withdrawal syndrome
  15. TOPIRAMATE [Suspect]
     Active Substance: TOPIRAMATE
     Indication: Alcoholism
     Dosage: UNK
     Route: 048
     Dates: start: 202110
  16. TOPIRAMATE [Suspect]
     Active Substance: TOPIRAMATE
     Indication: Alcohol withdrawal syndrome
  17. PREGABALIN [Suspect]
     Active Substance: PREGABALIN
     Indication: Torticollis
     Dosage: UNK
     Route: 065
     Dates: start: 202206
  18. TRIHEXYPHENIDYL [Suspect]
     Active Substance: TRIHEXYPHENIDYL
     Indication: Torticollis
     Dosage: UNK
     Route: 065
     Dates: start: 202206

REACTIONS (8)
  - Torticollis [Unknown]
  - Neck pain [Unknown]
  - Slow speech [Unknown]
  - Muscle spasticity [Unknown]
  - Kyphosis [Unknown]
  - Drug intolerance [Unknown]
  - Off label use [Unknown]
  - Product use in unapproved indication [Unknown]

NARRATIVE: CASE EVENT DATE: 20211001
